FAERS Safety Report 12274270 (Version 1)
Quarter: 2016Q2

REPORT INFORMATION
  Report Type: Spontaneous
  Country: US (occurrence: US)
  Receive Date: 20160415
  Receipt Date: 20160415
  Transmission Date: 20160815
  Serious: No
  Sender: FDA-Public Use
  Company Number: US-ALLERGAN-1510071US

PATIENT
  Sex: Female
  Weight: 63.49 kg

DRUGS (4)
  1. LATISSE [Suspect]
     Active Substance: BIMATOPROST
     Indication: GROWTH OF EYELASHES
     Dosage: 1 GTT, QHS
     Route: 061
     Dates: start: 201503, end: 201504
  2. LATISSE [Suspect]
     Active Substance: BIMATOPROST
     Dosage: UNK
     Route: 061
     Dates: start: 201504, end: 20150415
  3. PRED FORTE [Concomitant]
     Active Substance: PREDNISOLONE ACETATE
     Indication: CORNEAL OPERATION
     Dosage: 1 GTT, QHS
     Route: 047
     Dates: start: 2007
  4. LATISSE [Suspect]
     Active Substance: BIMATOPROST
     Dosage: 2 GTT, QOD
     Route: 061
     Dates: start: 201504, end: 201504

REACTIONS (3)
  - Drug dose omission [Unknown]
  - Ocular hyperaemia [Unknown]
  - Eye pain [Recovered/Resolved]
